FAERS Safety Report 14048391 (Version 4)
Quarter: 2018Q4

REPORT INFORMATION
  Report Type: Report from Study
  Country: CR (occurrence: CR)
  Receive Date: 20171005
  Receipt Date: 20181026
  Transmission Date: 20190204
  Serious: Yes (Other)
  Sender: FDA-Public Use
  Company Number: PHHY2017CR144087

PATIENT
  Sex: Male
  Weight: 88 kg

DRUGS (1)
  1. SANDOSTATIN LAR DEPOT [Suspect]
     Active Substance: OCTREOTIDE ACETATE
     Indication: NEUROENDOCRINE TUMOUR
     Dosage: 20 MG, QMO (EVERY 28 DAYS)
     Route: 030

REACTIONS (5)
  - Musculoskeletal pain [Unknown]
  - Haematemesis [Unknown]
  - Weight decreased [Unknown]
  - Gastrointestinal inflammation [Unknown]
  - Headache [Unknown]
